FAERS Safety Report 10065345 (Version 2)
Quarter: 2014Q2

REPORT INFORMATION
  Report Type: Spontaneous
  Country: US (occurrence: None)
  Receive Date: 20140404
  Receipt Date: 20140507
  Transmission Date: 20141212
  Serious: Yes (Hospitalization, Other)
  Sender: FDA-Public Use
  Company Number: ADR-2014-00538

PATIENT
  Age: 15 Year
  Sex: Female

DRUGS (7)
  1. LIORESAL [Suspect]
     Indication: MUSCLE SPASTICITY
  2. KEPPRA [Suspect]
  3. TOPAMAX [Suspect]
  4. PREVACID [Suspect]
  5. VITAMIN D [Suspect]
  6. SINGULAIR [Suspect]
  7. TENORMIN [Suspect]

REACTIONS (7)
  - Overdose [None]
  - Drug hypersensitivity [None]
  - Somnolence [None]
  - Lethargy [None]
  - Abdominal distension [None]
  - Constipation [None]
  - Faecaloma [None]
